FAERS Safety Report 4969895-7 (Version None)
Quarter: 2006Q1

REPORT INFORMATION
  Report Type: 
  Country: None (occurrence: None)
  Receive Date: 20060202
  Receipt Date: 20050708
  Transmission Date: 20060701
  Serious: No
  Sender: FDA-Public Use
  Company Number: US-2005-007380

PATIENT
  Sex: Female

DRUGS (2)
  1. MIRENA [Suspect]
     Dosage: SEE IMAGE
     Route: 015
     Dates: start: 20040916, end: 20050323
  2. MIRENA [Suspect]
     Dosage: SEE IMAGE
     Route: 015
     Dates: start: 20050503

REACTIONS (1)
  - CERVICAL DYSPLASIA [None]
